FAERS Safety Report 9558378 (Version 3)
Quarter: 2013Q4

REPORT INFORMATION
  Report Type: Report from Study
  Country: US (occurrence: US)
  Receive Date: 20130926
  Receipt Date: 20131008
  Transmission Date: 20140711
  Serious: Yes (Life-Threatening, Hospitalization)
  Sender: FDA-Public Use
  Company Number: US-ACTELION-A-NJ2013-79774

PATIENT
  Age: 41 Year
  Sex: Female

DRUGS (4)
  1. TRACLEER [Suspect]
     Indication: PULMONARY ARTERIAL HYPERTENSION
     Dosage: UNK
     Route: 048
  2. ASPIRIN [Concomitant]
  3. SILDENAFIL [Concomitant]
  4. TYVASO [Concomitant]

REACTIONS (3)
  - Heart valve replacement [Recovering/Resolving]
  - Pulmonary artery stenosis [Recovering/Resolving]
  - Dyspnoea [Recovering/Resolving]
